FAERS Safety Report 7119927-5 (Version None)
Quarter: 2010Q4

REPORT INFORMATION
  Report Type: 
  Country: None (occurrence: None)
  Receive Date: 20101123
  Receipt Date: 20101022
  Transmission Date: 20110411
  Serious: No
  Sender: FDA-Public Use
  Company Number: US-BRISTOL-MYERS SQUIBB COMPANY-15347396

PATIENT
  Sex: Male

DRUGS (1)
  1. ONGLYZA [Suspect]
     Dates: start: 20100101

REACTIONS (2)
  - GLYCOSYLATED HAEMOGLOBIN DECREASED [None]
  - WEIGHT DECREASED [None]
